FAERS Safety Report 4649234-1 (Version None)
Quarter: 2005Q2

REPORT INFORMATION
  Report Type: 
  Country: None (occurrence: None)
  Receive Date: 20050429
  Receipt Date: 20050418
  Transmission Date: 20051028
  Serious: Yes (Other)
  Sender: FDA-Public Use
  Company Number: FR-JNJFOC-20050404415

PATIENT
  Sex: Female
  Weight: 54 kg

DRUGS (5)
  1. INFLIXIMAB [Suspect]
     Route: 042
  2. INFLIXIMAB [Suspect]
     Dosage: ONLY 30MG ADMINISTERED.
     Route: 042
  3. INFLIXIMAB [Suspect]
     Dosage: 3RD INFUSION.
     Route: 042
  4. INFLIXIMAB [Suspect]
     Dosage: 2ND INFUSION.
     Route: 042
  5. INFLIXIMAB [Suspect]
     Indication: RHEUMATOID ARTHRITIS
     Dosage: 1ST INFUSION.
     Route: 042

REACTIONS (10)
  - BLOOD PRESSURE DECREASED [None]
  - BLOOD PRESSURE INCREASED [None]
  - CHILLS [None]
  - DYSPNOEA [None]
  - HEADACHE [None]
  - INFUSION RELATED REACTION [None]
  - PRURITUS [None]
  - SKIN TIGHTNESS [None]
  - SPEECH DISORDER [None]
  - SWELLING [None]
